FAERS Safety Report 8243112-7 (Version None)
Quarter: 2012Q1

REPORT INFORMATION
  Report Type: 
  Country: None (occurrence: None)
  Receive Date: 20120329
  Receipt Date: 20120104
  Transmission Date: 20120608
  Serious: No
  Sender: FDA-Public Use
  Company Number: US-MYLANLABS-2012S1000297

PATIENT
  Sex: Female

DRUGS (3)
  1. ALBUTEROL SULATE [Suspect]
     Indication: ASTHMA
     Route: 055
  2. PROVENTIL [Concomitant]
     Indication: ASTHMA
     Route: 055
  3. ALBUTEROL SULATE [Suspect]
     Indication: BRONCHITIS
     Route: 055

REACTIONS (2)
  - DRUG EFFECT DECREASED [None]
  - ASTHMA [None]
